FAERS Safety Report 17511392 (Version 1)
Quarter: 2020Q1

REPORT INFORMATION
  Report Type: Spontaneous
  Country: US (occurrence: US)
  Receive Date: 20200226
  Receipt Date: 20200226
  Transmission Date: 20200409
  Serious: Yes (Hospitalization, Other)
  Sender: FDA-Public Use
  Company Number: None

PATIENT
  Age: 67 Year
  Sex: Male
  Weight: 101 kg

DRUGS (2)
  1. OXYCODONE (OXYCODONE HCL 10MG TAB) [Suspect]
     Active Substance: OXYCODONE HYDROCHLORIDE
     Route: 048
     Dates: start: 20190328, end: 20190329
  2. CEFAZOLIN (CEFAZOLIN NA 1GM/VIL INJ) [Suspect]
     Active Substance: CEFAZOLIN
     Indication: SURGERY
     Route: 042
     Dates: start: 20190328, end: 20190329

REACTIONS (1)
  - Flushing [None]

NARRATIVE: CASE EVENT DATE: 20190529
